FAERS Safety Report 6617461-X (Version None)
Quarter: 2010Q1

REPORT INFORMATION
  Report Type: 
  Country: None (occurrence: None)
  Receive Date: 20100308
  Receipt Date: 20100115
  Transmission Date: 20100710
  Serious: Yes (Hospitalization, Other)
  Sender: FDA-Public Use
  Company Number: JP-JNJFOC-20091105758

PATIENT
  Age: 61 Year
  Sex: Female

DRUGS (6)
  1. LEVOFLOXACIN [Suspect]
     Indication: BRONCHITIS
     Route: 048
     Dates: start: 20090930, end: 20091013
  2. LEVOFLOXACIN [Suspect]
     Route: 048
     Dates: start: 20090930, end: 20091013
  3. PELEX [Concomitant]
     Indication: BRONCHITIS
     Route: 048
     Dates: start: 20090930, end: 20091013
  4. LYSOZYME HYDROCHLORIDE [Concomitant]
     Indication: BRONCHITIS
     Route: 048
     Dates: start: 20090930, end: 20091013
  5. MEDICON [Concomitant]
     Indication: BRONCHITIS
     Route: 048
     Dates: start: 20090930, end: 20091013
  6. UNKNOWN MULTIPLE MEDICATION [Concomitant]

REACTIONS (2)
  - HEPATIC FUNCTION ABNORMAL [None]
  - PNEUMONIA [None]
